FAERS Safety Report 9271730 (Version 2)
Quarter: 2013Q2

REPORT INFORMATION
  Report Type: Report from Study
  Country: DE (occurrence: DE)
  Receive Date: 20130506
  Receipt Date: 20130613
  Transmission Date: 20140414
  Serious: Yes (Hospitalization)
  Sender: FDA-Public Use
  Company Number: DE-BRISTOL-MYERS SQUIBB COMPANY-18849307

PATIENT
  Age: 55 Year
  Sex: Male
  Weight: 51 kg

DRUGS (7)
  1. CETUXIMAB [Suspect]
     Indication: HEAD AND NECK CANCER
     Dosage: 400MG/M2:DAY1?250MG/M2:WEEKLY
     Route: 042
     Dates: start: 20110811
  2. CISPLATIN [Suspect]
     Indication: HEAD AND NECK CANCER
     Dosage: WEEK4?EVERY 4 WKS FOR 2 MNTHS.
     Route: 042
     Dates: start: 20110811, end: 20110908
  3. DOCETAXEL [Suspect]
     Indication: HEAD AND NECK CANCER
     Dosage: WEEK 4?FREQ:EVERY 4 WKS FOR 2 MNTHS.
     Route: 042
     Dates: start: 20110811, end: 20110908
  4. LEVOFLOXACIN [Concomitant]
     Route: 048
  5. RAMIPRIL [Concomitant]
     Route: 048
  6. ACETYLSALICYLIC ACID [Concomitant]
     Route: 048
  7. MAGNESIUM VERLA [Concomitant]
     Route: 048

REACTIONS (3)
  - Hypotension [Recovered/Resolved]
  - Syncope [Recovered/Resolved]
  - Hypomagnesaemia [Recovered/Resolved]
